FAERS Safety Report 9164961 (Version 1)
Quarter: 2013Q1

REPORT INFORMATION
  Report Type: Spontaneous
  Country: US (occurrence: US)
  Receive Date: 20130315
  Receipt Date: 20130315
  Transmission Date: 20140127
  Serious: Yes (Other)
  Sender: FDA-Public Use
  Company Number: US-BAYER-2013-029463

PATIENT
  Sex: Female

DRUGS (4)
  1. YAZ [Suspect]
  2. TYLENOL [Concomitant]
     Indication: ADNEXA UTERI PAIN
  3. SOLU-MEDROL [Concomitant]
     Indication: OPTIC NEURITIS
     Route: 042
  4. PREDNISONE [Concomitant]
     Indication: OPTIC NEURITIS

REACTIONS (1)
  - Cerebrovascular accident [None]
